FAERS Safety Report 24788140 (Version 1)
Quarter: 2024Q4

REPORT INFORMATION
  Report Type: Spontaneous
  Country: US (occurrence: None)
  Receive Date: 20241227
  Receipt Date: 20241227
  Transmission Date: 20250114
  Serious: No
  Sender: Public
  Company Number: None

PATIENT
  Age: 16 Year
  Sex: Male

DRUGS (1)
  1. DUPIXENT [Suspect]
     Active Substance: DUPILUMAB
     Indication: Dermatitis atopic
     Dosage: 300MG EVERY 2 WEEKS SUBCUTANEOUS?
     Route: 058
     Dates: start: 20240808, end: 20241231

REACTIONS (2)
  - Drug ineffective [None]
  - Eczema [None]

NARRATIVE: CASE EVENT DATE: 20241227
